FAERS Safety Report 8054573-0 (Version None)
Quarter: 2012Q1

REPORT INFORMATION
  Report Type: 
  Country: None (occurrence: None)
  Receive Date: 20120119
  Receipt Date: 20120112
  Transmission Date: 20120608
  Serious: Yes (Hospitalization)
  Sender: FDA-Public Use
  Company Number: US-BIOGENIDEC-2010BI027582

PATIENT
  Age: 63 Year
  Sex: Male

DRUGS (1)
  1. AVONEX [Suspect]
     Indication: MULTIPLE SCLEROSIS
     Route: 030
     Dates: start: 20060216

REACTIONS (4)
  - GASTROINTESTINAL INFECTION [None]
  - CHOLECYSTITIS INFECTIVE [None]
  - PANCREAS INFECTION [None]
  - CHOLELITHIASIS [None]
